FAERS Safety Report 6060876-1 (Version None)
Quarter: 2009Q1

REPORT INFORMATION
  Report Type: 
  Country: None (occurrence: None)
  Receive Date: 20090130
  Receipt Date: 20090130
  Transmission Date: 20090719
  Serious: No
  Sender: FDA-Public Use
  Company Number: None

PATIENT
  Sex: Male
  Weight: 63.5036 kg

DRUGS (1)
  1. FLOMAX [Suspect]
     Indication: BENIGN PROSTATIC HYPERPLASIA
     Dosage: 0.4 MG ONCE DAILY PO
     Route: 048
     Dates: start: 20060401

REACTIONS (2)
  - FLOPPY IRIS SYNDROME [None]
  - UNEVALUABLE EVENT [None]
